FAERS Safety Report 14778865 (Version 2)
Quarter: 2018Q3

REPORT INFORMATION
  Report Type: Report from Study
  Country: GR (occurrence: GR)
  Receive Date: 20180419
  Receipt Date: 20180920
  Transmission Date: 20181010
  Serious: No
  Sender: FDA-Public Use
  Company Number: GR-JNJFOC-20180226171

PATIENT
  Age: 54 Year
  Sex: Female

DRUGS (2)
  1. STELARA [Suspect]
     Active Substance: USTEKINUMAB
     Indication: PSORIATIC ARTHROPATHY
     Route: 058
     Dates: start: 20090828
  2. STELARA [Suspect]
     Active Substance: USTEKINUMAB
     Indication: PSORIASIS
     Route: 058
     Dates: start: 20090828

REACTIONS (3)
  - Hepatic enzyme increased [Not Recovered/Not Resolved]
  - Fungal skin infection [Recovered/Resolved]
  - Pruritus genital [Recovered/Resolved]

NARRATIVE: CASE EVENT DATE: 20091013
